FAERS Safety Report 7919609-3 (Version None)
Quarter: 2011Q4

REPORT INFORMATION
  Report Type: 
  Country: None (occurrence: None)
  Receive Date: 20111115
  Receipt Date: 20111031
  Transmission Date: 20120403
  Serious: Yes (Life-Threatening, Hospitalization, Disabling)
  Sender: FDA-Public Use
  Company Number: WAES 1111USA00166

PATIENT
  Age: 67 Year
  Sex: Female

DRUGS (25)
  1. OXYCODONE HCL [Concomitant]
  2. ENOXAPARIN SODIUM [Concomitant]
  3. POTASSIUM CHLORIDE [Concomitant]
  4. ACETAMINOPHEN [Concomitant]
  5. ROTIGOTINE [Concomitant]
  6. OXYCONTIN [Concomitant]
  7. CEFTRIAXONE SODIUM [Concomitant]
  8. CYCLIZINE [Concomitant]
  9. DICLOFENAC SODIUM [Concomitant]
  10. DOMPERIDONE [Concomitant]
  11. MORPHINE [Concomitant]
  12. OMNIPAQUE 140 [Concomitant]
  13. NITROGLYCERIN [Concomitant]
  14. OMEPRAZOLE [Concomitant]
  15. TAB SINEMENT (CARBIDOPA/LEVODOPA) [Suspect]
     Indication: PARKINSON'S DISEASE
     Dosage: 1700 MG/DAILY, PO, 1000 MG/DAILY, PO, 1600 MG/DAILY, PO, 1600 MG/DAILY, PO
     Route: 048
     Dates: start: 20100423
  16. TAB SINEMENT (CARBIDOPA/LEVODOPA) [Suspect]
     Indication: PARKINSON'S DISEASE
     Dosage: 1700 MG/DAILY, PO, 1000 MG/DAILY, PO, 1600 MG/DAILY, PO, 1600 MG/DAILY, PO
     Route: 048
     Dates: start: 20100507, end: 20100508
  17. TAB SINEMENT (CARBIDOPA/LEVODOPA) [Suspect]
     Indication: PARKINSON'S DISEASE
     Dosage: 1700 MG/DAILY, PO, 1000 MG/DAILY, PO, 1600 MG/DAILY, PO, 1600 MG/DAILY, PO
     Route: 048
     Dates: start: 20100509, end: 20100517
  18. TAB SINEMENT (CARBIDOPA/LEVODOPA) [Suspect]
     Indication: PARKINSON'S DISEASE
     Dosage: 1700 MG/DAILY, PO, 1000 MG/DAILY, PO, 1600 MG/DAILY, PO, 1600 MG/DAILY, PO
     Route: 048
     Dates: start: 20100518, end: 20100525
  19. TAB SINEMENT (CARBIDOPA/LEVODOPA) [Suspect]
     Indication: PARKINSON'S DISEASE
     Dosage: 1700 MG/DAILY, PO, 1000 MG/DAILY, PO, 1600 MG/DAILY, PO, 1600 MG/DAILY, PO
     Route: 048
     Dates: start: 20100518, end: 20100525
  20. CHOLECALCIFEROL [Concomitant]
  21. ONDANSETRON [Concomitant]
  22. MADOPAR [Concomitant]
  23. CITALOPRAM HYDROBROMIDE [Concomitant]
  24. FUROSEMIDE [Concomitant]
  25. QUETIAPINE FUMARATE [Concomitant]

REACTIONS (44)
  - NEUTROPENIA [None]
  - INTESTINAL OBSTRUCTION [None]
  - RESPIRATORY DISTRESS [None]
  - LYMPHOCYTE COUNT DECREASED [None]
  - BLOOD BICARBONATE DECREASED [None]
  - GLOMERULAR FILTRATION RATE DECREASED [None]
  - BLOOD POTASSIUM DECREASED [None]
  - LOCALISED INTRAABDOMINAL FLUID COLLECTION [None]
  - PNEUMONIA [None]
  - FIBRIN D DIMER INCREASED [None]
  - BASE EXCESS DECREASED [None]
  - BLOOD FIBRINOGEN INCREASED [None]
  - FLATULENCE [None]
  - SMALL INTESTINAL OBSTRUCTION [None]
  - POST PROCEDURAL COMPLICATION [None]
  - NEUTROPHIL TOXIC GRANULATION PRESENT [None]
  - BLOOD PH DECREASED [None]
  - BLOOD BILIRUBIN INCREASED [None]
  - BLOOD ALKALINE PHOSPHATASE INCREASED [None]
  - RENAL IMPAIRMENT [None]
  - INAPPROPRIATE ANTIDIURETIC HORMONE SECRETION [None]
  - HAEMOGLOBIN DECREASED [None]
  - WHITE BLOOD CELL MORPHOLOGY ABNORMAL [None]
  - GAMMA-GLUTAMYLTRANSFERASE INCREASED [None]
  - VOMITING [None]
  - SYNCOPE [None]
  - ABDOMINAL PAIN [None]
  - INFECTIOUS PERITONITIS [None]
  - HYPOTENSION [None]
  - PO2 DECREASED [None]
  - BLOOD ALBUMIN DECREASED [None]
  - OEDEMA PERIPHERAL [None]
  - NAUSEA [None]
  - PARKINSON'S DISEASE [None]
  - METAMYELOCYTE COUNT INCREASED [None]
  - BLOOD UREA INCREASED [None]
  - LEUKOPENIA [None]
  - HAEMATOCRIT DECREASED [None]
  - SHIFT TO THE LEFT [None]
  - BLOOD CALCIUM DECREASED [None]
  - ASPARTATE AMINOTRANSFERASE INCREASED [None]
  - PLATELET COUNT INCREASED [None]
  - THROMBOCYTOPENIA [None]
  - WEIGHT DECREASED [None]
